FAERS Safety Report 7564840-2 (Version None)
Quarter: 2011Q2

REPORT INFORMATION
  Report Type: 
  Country: None (occurrence: None)
  Receive Date: 20110622
  Receipt Date: 20110126
  Transmission Date: 20111010
  Serious: Yes (Death)
  Sender: FDA-Public Use
  Company Number: US-MYLANLABS-2011S1000029

PATIENT
  Age: 52 Year
  Sex: Male

DRUGS (13)
  1. DOCUSATE [Concomitant]
  2. SIMVASTATIN [Concomitant]
  3. CARVEDILOL [Concomitant]
  4. DARVOCET [Concomitant]
  5. OMEPRAZOLE [Concomitant]
  6. CLOZAPINE [Suspect]
     Indication: SCHIZOPHRENIA
     Route: 048
  7. ISOSORBID MONONITRATE [Concomitant]
  8. COMBIVENT [Concomitant]
  9. PHENYTOIN [Concomitant]
  10. BACTRIM [Concomitant]
  11. CLOZAPINE [Suspect]
     Route: 048
  12. ROPINIROLE [Concomitant]
  13. HYDROCODONE [Concomitant]

REACTIONS (1)
  - DEATH [None]
